FAERS Safety Report 9444363 (Version 2)
Quarter: 2013Q3

REPORT INFORMATION
  Report Type: Report from Study
  Country: CA (occurrence: CA)
  Receive Date: 20130807
  Receipt Date: 20130904
  Transmission Date: 20140515
  Serious: Yes (Other)
  Sender: FDA-Public Use
  Company Number: CA-JNJFOC-20130719114

PATIENT
  Sex: Female
  Weight: 87.3 kg

DRUGS (7)
  1. REMICADE [Suspect]
     Indication: CROHN^S DISEASE
     Dosage: 36TH INFUSION
     Route: 042
     Dates: start: 20130730
  2. REMICADE [Suspect]
     Indication: CROHN^S DISEASE
     Route: 042
     Dates: start: 20100310
  3. PANTOLOC [Concomitant]
     Route: 065
  4. VITAMIN B12 [Concomitant]
     Route: 065
  5. DILTIAZEM [Concomitant]
     Route: 065
  6. IRON [Concomitant]
     Route: 065
  7. LOMOTIL [Concomitant]
     Route: 065

REACTIONS (1)
  - Cataract [Unknown]
